FAERS Safety Report 5613985-2 (Version None)
Quarter: 2008Q1

REPORT INFORMATION
  Report Type: 
  Country: None (occurrence: None)
  Receive Date: 20080205
  Receipt Date: 20080129
  Transmission Date: 20080703
  Serious: Yes (Other)
  Sender: FDA-Public Use
  Company Number: DE-JNJFOC-20080102978

PATIENT
  Age: 47 Year
  Sex: Female
  Weight: 70 kg

DRUGS (7)
  1. REMICADE [Suspect]
     Route: 042
  2. REMICADE [Suspect]
     Route: 042
  3. REMICADE [Suspect]
     Indication: ANKYLOSING SPONDYLITIS
     Route: 042
  4. HUMIRA [Concomitant]
  5. L-THYROXIN [Concomitant]
     Indication: THYROID THERAPY
  6. CALCIUM GLUCONATE [Concomitant]
  7. CELEBREX [Concomitant]

REACTIONS (3)
  - ANTINUCLEAR ANTIBODY INCREASED [None]
  - DRUG INEFFECTIVE [None]
  - LUPUS-LIKE SYNDROME [None]
